FAERS Safety Report 5291599-4 (Version None)
Quarter: 2007Q2

REPORT INFORMATION
  Report Type: 
  Country: None (occurrence: None)
  Receive Date: 20070410
  Receipt Date: 20070404
  Transmission Date: 20071010
  Serious: Yes (Hospitalization)
  Sender: FDA-Public Use
  Company Number: US-RB-005803-07

PATIENT
  Sex: Female
  Weight: 76.5 kg

DRUGS (3)
  1. SUBUTEX [Suspect]
     Route: 060
     Dates: start: 20070314, end: 20070315
  2. SUBUTEX [Suspect]
     Dosage: PATIENT SLOWLY TAPERED OFF DOSE WHILE IN DETOX CENTER
     Route: 060
     Dates: start: 20070316, end: 20070401
  3. SUBOXONE [Suspect]
     Route: 060
     Dates: start: 20070313, end: 20070313

REACTIONS (4)
  - DRUG DEPENDENCE [None]
  - HYPERHIDROSIS [None]
  - HYPERTENSION [None]
  - IRRITABILITY [None]
